FAERS Safety Report 6917843-2 (Version None)
Quarter: 2010Q3

REPORT INFORMATION
  Report Type: 
  Country: None (occurrence: None)
  Receive Date: 20100810
  Receipt Date: 20090424
  Transmission Date: 20110219
  Serious: No
  Sender: FDA-Public Use
  Company Number: US-PFIZER INC-2009204568

PATIENT
  Sex: Male
  Weight: 101 kg

DRUGS (2)
  1. TOVIAZ [Suspect]
     Indication: POLLAKIURIA
     Dosage: 8 MG, 1X/DAY
     Dates: start: 20090422
  2. FINASTERIDE [Concomitant]
     Dosage: 5 MG, 1X/DAY

REACTIONS (2)
  - DRY EYE [None]
  - DRY MOUTH [None]
